FAERS Safety Report 25688908 (Version 1)
Quarter: 2025Q3

REPORT INFORMATION
  Report Type: Spontaneous
  Country: AU (occurrence: None)
  Receive Date: 20250818
  Receipt Date: 20250818
  Transmission Date: 20251020
  Serious: Yes (Other)
  Sender: ALEXION PHARMACEUTICALS
  Company Number: AU-ASTRAZENECA-202508OCE001928AU

PATIENT
  Age: 60 Year
  Sex: Male

DRUGS (4)
  1. TICAGRELOR [Suspect]
     Active Substance: TICAGRELOR
     Route: 065
  2. PANTOPRAZOLE [Suspect]
     Active Substance: PANTOPRAZOLE
     Route: 065
  3. ROSUVASTATIN [Suspect]
     Active Substance: ROSUVASTATIN
     Route: 065
  4. ASPIRIN [Suspect]
     Active Substance: ASPIRIN

REACTIONS (5)
  - Abdominal discomfort [Recovering/Resolving]
  - Drug ineffective [Unknown]
  - Gallbladder disorder [Unknown]
  - Gastrointestinal ulcer [Unknown]
  - Helicobacter infection [Unknown]
